FAERS Safety Report 5822422-4 (Version None)
Quarter: 2008Q3

REPORT INFORMATION
  Report Type: 
  Country: None (occurrence: None)
  Receive Date: 20080723
  Receipt Date: 20080723
  Transmission Date: 20090109
  Serious: Yes (Hospitalization)
  Sender: FDA-Public Use
  Company Number: None

PATIENT
  Age: 53 Year
  Sex: Male

DRUGS (1)
  1. TRAMADOL HCL [Suspect]
     Indication: PAIN
     Dosage: 50MG QID PO
     Route: 048
     Dates: start: 20070706, end: 20070907

REACTIONS (6)
  - CONDITION AGGRAVATED [None]
  - CONVULSION [None]
  - SLEEP DISORDER [None]
  - SPEECH DISORDER [None]
  - THINKING ABNORMAL [None]
  - WEIGHT DECREASED [None]
